FAERS Safety Report 17290501 (Version 1)
Quarter: 2020Q1

REPORT INFORMATION
  Report Type: Report from Study
  Country: IT (occurrence: IT)
  Receive Date: 20200121
  Receipt Date: 20200121
  Transmission Date: 20200409
  Serious: Yes (Hospitalization, Other)
  Sender: FDA-Public Use
  Company Number: IT-BRISTOL-MYERS SQUIBB COMPANY-BMS-2020-003268

PATIENT
  Age: 71 Year
  Sex: Male

DRUGS (1)
  1. APIXABAN [Suspect]
     Active Substance: APIXABAN
     Indication: THROMBOSIS PROPHYLAXIS
     Dosage: 5 MG, TOTAL DAILY DOSE
     Route: 048
     Dates: start: 20190415, end: 20200101

REACTIONS (2)
  - Cholelithiasis [Recovering/Resolving]
  - Cholecystitis acute [Recovering/Resolving]

NARRATIVE: CASE EVENT DATE: 20200101
